FAERS Safety Report 6712936-7 (Version None)
Quarter: 2010Q2

REPORT INFORMATION
  Report Type: 
  Country: None (occurrence: None)
  Receive Date: 20100505
  Receipt Date: 20100505
  Transmission Date: 20101027
  Serious: Yes (Hospitalization)
  Sender: FDA-Public Use
  Company Number: None

PATIENT
  Age: 6 Year
  Sex: Male
  Weight: 28.5766 kg

DRUGS (5)
  1. CHILDREN'S MOTRIN [Suspect]
     Indication: PYREXIA
     Dosage: 2 1/2 TSP. EVERY 6-8 HRS PO
     Route: 048
     Dates: start: 20100427, end: 20100501
  2. TOBRAMYCIN [Concomitant]
  3. ACETAMINOPHEN RAPID [Concomitant]
  4. CHILDRENS TYLENOL SUSPENSION [Concomitant]
  5. CEFPROZIL SUSPENSION [Concomitant]

REACTIONS (2)
  - DRUG INEFFECTIVE [None]
  - PRODUCT QUALITY ISSUE [None]
